FAERS Safety Report 18229403 (Version 2)
Quarter: 2020Q4

REPORT INFORMATION
  Report Type: Spontaneous
  Country: FR (occurrence: FR)
  Receive Date: 20200903
  Receipt Date: 20201126
  Transmission Date: 20210113
  Serious: Yes (Death, Hospitalization, Other)
  Sender: FDA-Public Use
  Company Number: FR-ALLERGAN-2033636US

PATIENT
  Sex: Male

DRUGS (46)
  1. CEFTAROLINE FOSAMIL - BP [Suspect]
     Active Substance: CEFTAROLINE FOSAMIL
     Indication: BACTERAEMIA
  2. CEFTAZIDIME;AVIBACTAM - BP [Suspect]
     Active Substance: AVIBACTAM SODIUM\CEFTAZIDIME
     Indication: PERITONITIS
  3. TIGECYCLINE. [Suspect]
     Active Substance: TIGECYCLINE
     Indication: PRODUCT USED FOR UNKNOWN INDICATION
  4. PIPERACILLIN/TAZOBACTAM [Suspect]
     Active Substance: PIPERACILLIN SODIUM\TAZOBACTAM SODIUM
     Indication: PERITONITIS
  5. CEFTAZIDIME. [Suspect]
     Active Substance: CEFTAZIDIME
     Indication: ENTEROBACTER INFECTION
  6. CEFEPIME [Suspect]
     Active Substance: CEFEPIME HYDROCHLORIDE
     Indication: ENTEROBACTER INFECTION
  7. ERTAPENEM. [Suspect]
     Active Substance: ERTAPENEM SODIUM
     Indication: ANTIBIOTIC THERAPY
  8. ERYTHROMYCINUM [Suspect]
     Active Substance: ERYTHROMYCIN
     Indication: PNEUMONIA
  9. PIPERACILLIN/TAZOBACTAM [Suspect]
     Active Substance: PIPERACILLIN SODIUM\TAZOBACTAM SODIUM
     Indication: PNEUMONIA
  10. LINEZOLID. [Suspect]
     Active Substance: LINEZOLID
     Indication: BACTERAEMIA
  11. LEVOFLOXACIN. [Suspect]
     Active Substance: LEVOFLOXACIN
     Indication: PERITONITIS
  12. PIPERACILLIN/TAZOBACTAM [Suspect]
     Active Substance: PIPERACILLIN SODIUM\TAZOBACTAM SODIUM
     Indication: BACTERAEMIA
  13. CEFEPIME [Suspect]
     Active Substance: CEFEPIME HYDROCHLORIDE
     Indication: ANTIBIOTIC THERAPY
  14. DAPTOMYCIN. [Suspect]
     Active Substance: DAPTOMYCIN
     Indication: BACTERAEMIA
  15. IMIPENEM [Suspect]
     Active Substance: IMIPENEM
     Indication: BACTERAEMIA
  16. CEFTAROLINE FOSAMIL - BP [Suspect]
     Active Substance: CEFTAROLINE FOSAMIL
     Indication: PNEUMONIA
  17. LINEZOLID. [Suspect]
     Active Substance: LINEZOLID
     Indication: PNEUMONIA
  18. CIPROFLOXACIN. [Suspect]
     Active Substance: CIPROFLOXACIN
     Indication: ANTIBIOTIC THERAPY
  19. AMIKACIN. [Suspect]
     Active Substance: AMIKACIN
     Indication: PNEUMONIA
  20. VANCOMYCIN [Suspect]
     Active Substance: VANCOMYCIN
     Indication: PNEUMONIA
  21. ERYTHROMYCINUM [Suspect]
     Active Substance: ERYTHROMYCIN
     Indication: PERITONITIS
  22. MEROPENEM. [Suspect]
     Active Substance: MEROPENEM
     Indication: BACTERAEMIA
  23. MEROPENEM. [Suspect]
     Active Substance: MEROPENEM
     Indication: PERITONITIS
  24. LEVOFLOXACIN. [Suspect]
     Active Substance: LEVOFLOXACIN
     Indication: BACTERAEMIA
  25. CEFTAZIDIME. [Suspect]
     Active Substance: CEFTAZIDIME
     Indication: ANTIBIOTIC THERAPY
  26. CIPROFLOXACIN. [Suspect]
     Active Substance: CIPROFLOXACIN
     Indication: ENTEROBACTER INFECTION
  27. DAPTOMYCIN. [Suspect]
     Active Substance: DAPTOMYCIN
     Indication: PERITONITIS
  28. CEFTAZIDIME;AVIBACTAM - BP [Suspect]
     Active Substance: AVIBACTAM SODIUM\CEFTAZIDIME
     Indication: PNEUMONIA
  29. MEROPENEM. [Suspect]
     Active Substance: MEROPENEM
     Indication: PNEUMONIA
  30. LEVOFLOXACIN. [Suspect]
     Active Substance: LEVOFLOXACIN
     Indication: PNEUMONIA
  31. CHLORAMPHENICOL [Suspect]
     Active Substance: CHLORAMPHENICOL
     Indication: ANTIBIOTIC THERAPY
  32. DAPTOMYCIN. [Suspect]
     Active Substance: DAPTOMYCIN
     Indication: PNEUMONIA
  33. AMIKACIN. [Suspect]
     Active Substance: AMIKACIN
     Indication: BACTERAEMIA
  34. VANCOMYCIN [Suspect]
     Active Substance: VANCOMYCIN
     Indication: PERITONITIS
  35. ERYTHROMYCINUM [Suspect]
     Active Substance: ERYTHROMYCIN
     Indication: BACTERAEMIA
  36. CEFTAROLINE FOSAMIL - BP [Suspect]
     Active Substance: CEFTAROLINE FOSAMIL
     Indication: PERITONITIS
  37. CEFTAZIDIME;AVIBACTAM - BP [Suspect]
     Active Substance: AVIBACTAM SODIUM\CEFTAZIDIME
     Indication: BACTERAEMIA
  38. LINEZOLID. [Suspect]
     Active Substance: LINEZOLID
     Indication: PERITONITIS
  39. ERTAPENEM. [Suspect]
     Active Substance: ERTAPENEM SODIUM
     Indication: ENTEROBACTER INFECTION
  40. TEMOCILLIN [Suspect]
     Active Substance: TEMOCILLIN
     Indication: ENTEROBACTER INFECTION
  41. IMIPENEM [Suspect]
     Active Substance: IMIPENEM
     Indication: PNEUMONIA
  42. IMIPENEM [Suspect]
     Active Substance: IMIPENEM
     Indication: PERITONITIS
  43. AMIKACIN. [Suspect]
     Active Substance: AMIKACIN
     Indication: PERITONITIS
  44. VANCOMYCIN [Suspect]
     Active Substance: VANCOMYCIN
     Indication: BACTERAEMIA
  45. CHLORAMPHENICOL [Suspect]
     Active Substance: CHLORAMPHENICOL
     Indication: ENTEROBACTER INFECTION
  46. TEMOCILLIN [Suspect]
     Active Substance: TEMOCILLIN
     Indication: ANTIBIOTIC THERAPY

REACTIONS (3)
  - Drug resistance [Unknown]
  - Drug ineffective [Unknown]
  - Septic shock [Fatal]
